FAERS Safety Report 18579037 (Version 1)
Quarter: 2020Q4

REPORT INFORMATION
  Report Type: Spontaneous
  Country: US (occurrence: US)
  Receive Date: 20201203
  Receipt Date: 20201203
  Transmission Date: 20210114
  Serious: No
  Sender: FDA-Public Use
  Company Number: None

PATIENT
  Age: 67 Year
  Sex: Female
  Weight: 55 kg

DRUGS (2)
  1. CEFTRIAXONE. [Suspect]
     Active Substance: CEFTRIAXONE
     Indication: OSTEOMYELITIS
     Route: 041
     Dates: start: 20201125, end: 20201127
  2. RIFAMPIN. [Concomitant]
     Active Substance: RIFAMPIN
     Dates: start: 20201113

REACTIONS (4)
  - Dyspnoea [None]
  - Swelling face [None]
  - Chest discomfort [None]
  - Rash [None]

NARRATIVE: CASE EVENT DATE: 20201127
